FAERS Safety Report 7271712-X (Version None)
Quarter: 2011Q1

REPORT INFORMATION
  Report Type: 
  Country: None (occurrence: None)
  Receive Date: 20110203
  Receipt Date: 20110125
  Transmission Date: 20110831
  Serious: Yes (Death, Life-Threatening, Hospitalization, Other)
  Sender: FDA-Public Use
  Company Number: JP-CELGENEUS-087-21880-11012419

PATIENT
  Sex: Male

DRUGS (14)
  1. LENADEX [Suspect]
     Route: 048
     Dates: start: 20101020, end: 20101118
  2. REVLIMID [Suspect]
     Route: 048
     Dates: start: 20101027, end: 20101101
  3. REVLIMID [Suspect]
     Route: 048
     Dates: start: 20101109, end: 20101118
  4. FAMOSTAGINE [Concomitant]
     Route: 048
     Dates: start: 20100922, end: 20101118
  5. OPSO [Concomitant]
     Indication: MULTIPLE MYELOMA
     Route: 048
     Dates: start: 20101108, end: 20101120
  6. FENTOS TAPE [Concomitant]
     Indication: MULTIPLE MYELOMA
     Route: 062
     Dates: start: 20101111, end: 20101120
  7. CLARITH [Concomitant]
     Indication: MULTIPLE MYELOMA
     Route: 048
     Dates: start: 20101109, end: 20101120
  8. REVLIMID [Suspect]
     Indication: MULTIPLE MYELOMA
     Route: 048
     Dates: start: 20100922, end: 20101012
  9. LENADEX [Suspect]
     Indication: MULTIPLE MYELOMA
     Route: 048
     Dates: start: 20100922
  10. REBAMIPIDE [Concomitant]
     Route: 048
     Dates: start: 20100922, end: 20101118
  11. ZYLORIC [Concomitant]
     Route: 048
     Dates: start: 20100922, end: 20101118
  12. VALTREX [Concomitant]
     Indication: PROPHYLAXIS
     Route: 048
     Dates: start: 20100922, end: 20101118
  13. REVLIMID [Suspect]
     Route: 048
     Dates: start: 20101020, end: 20101026
  14. BAKTAR [Concomitant]
     Indication: PROPHYLAXIS
     Route: 048
     Dates: start: 20100922, end: 20101118

REACTIONS (7)
  - PLATELET COUNT DECREASED [None]
  - HAEMOGLOBIN DECREASED [None]
  - NEUTROPHIL COUNT DECREASED [None]
  - INTERSTITIAL LUNG DISEASE [None]
  - DEATH [None]
  - MELAENA [None]
  - RASH [None]
